FAERS Safety Report 7224781-7 (Version None)
Quarter: 2011Q1

REPORT INFORMATION
  Report Type: 
  Country: None (occurrence: None)
  Receive Date: 20110106
  Receipt Date: 20110106
  Transmission Date: 20110831
  Serious: Yes (Other)
  Sender: FDA-Public Use
  Company Number: None

PATIENT
  Age: 83 Year
  Sex: Male
  Weight: 81.6475 kg

DRUGS (1)
  1. RANEXA [Suspect]
     Indication: ANGINA PECTORIS
     Dosage: 1 TABLET  2 X PER DAY
     Dates: start: 20101118, end: 20101202

REACTIONS (5)
  - URINARY INCONTINENCE [None]
  - RASH PRURITIC [None]
  - CONSTIPATION [None]
  - RASH GENERALISED [None]
  - JOINT SWELLING [None]
